FAERS Safety Report 6701827-3 (Version None)
Quarter: 2010Q2

REPORT INFORMATION
  Report Type: 
  Country: None (occurrence: None)
  Receive Date: 20100429
  Receipt Date: 20100426
  Transmission Date: 20101027
  Serious: Yes (Other)
  Sender: FDA-Public Use
  Company Number: DE-BAYER-201018559GPV

PATIENT
  Age: 64 Year
  Sex: Male

DRUGS (10)
  1. MAGNEVIST [Suspect]
     Indication: NUCLEAR MAGNETIC RESONANCE IMAGING
     Dosage: TOTAL DAILY DOSE: 15 ML
     Route: 065
     Dates: start: 20100302, end: 20100302
  2. CARVEDILOL [Concomitant]
  3. CLOPIDOGREL [Concomitant]
  4. INEGY [Concomitant]
  5. ISDN [Concomitant]
  6. MOLSIDOMIN [Concomitant]
  7. RAMICARD [Concomitant]
  8. RAMICARD PLUS [Concomitant]
  9. TELEDIN [Concomitant]
  10. TORSEMIDE [Concomitant]

REACTIONS (16)
  - APHAGIA [None]
  - CONTRAST MEDIA ALLERGY [None]
  - DRY MOUTH [None]
  - DYSPNOEA [None]
  - ENLARGED UVULA [None]
  - INFLUENZA LIKE ILLNESS [None]
  - INSOMNIA [None]
  - MOUTH HAEMORRHAGE [None]
  - ODYNOPHAGIA [None]
  - ORAL MUCOSAL ERYTHEMA [None]
  - PALATAL OEDEMA [None]
  - PHARYNGEAL ERYTHEMA [None]
  - PHARYNGEAL NECROSIS [None]
  - PHARYNGEAL OEDEMA [None]
  - THROAT TIGHTNESS [None]
  - TONSILLAR HYPERTROPHY [None]
